FAERS Safety Report 23495555 (Version 5)
Quarter: 2024Q3

REPORT INFORMATION
  Report Type: Spontaneous
  Country: US (occurrence: US)
  Receive Date: 20240207
  Receipt Date: 20240925
  Transmission Date: 20241017
  Serious: Yes (Other)
  Sender: ORGANON
  Company Number: US-ORGANON-O2402USA000537

PATIENT
  Age: 30 Year
  Sex: Female
  Weight: 83.46 kg

DRUGS (2)
  1. NEXPLANON [Suspect]
     Active Substance: ETONOGESTREL
     Dosage: 1 IMPLANT, 68 MG
     Route: 059
     Dates: start: 202012, end: 20240112
  2. CARBAMAZEPINE [Concomitant]
     Active Substance: CARBAMAZEPINE
     Indication: Epilepsy
     Dosage: UNK

REACTIONS (5)
  - Pregnancy with implant contraceptive [Recovered/Resolved]
  - Unintended pregnancy [Recovered/Resolved]
  - Pelvic discomfort [Unknown]
  - Vaginal haemorrhage [Unknown]
  - Incorrect product administration duration [Unknown]

NARRATIVE: CASE EVENT DATE: 20231010
